FAERS Safety Report 20932565 (Version 2)
Quarter: 2022Q2

REPORT INFORMATION
  Report Type: Spontaneous
  Country: CA (occurrence: CA)
  Receive Date: 20220608
  Receipt Date: 20220624
  Transmission Date: 20220721
  Serious: Yes (Death)
  Sender: FDA-Public Use
  Company Number: CA-PFIZER INC-2020521319

PATIENT
  Age: 50 Year
  Sex: Female

DRUGS (6)
  1. IBRANCE [Suspect]
     Active Substance: PALBOCICLIB
     Indication: Breast cancer metastatic
     Dosage: 75 MG, CYCLIC (DAILY 3 WEEKS ON, 1 WEEKS OFF EVERY 28 DAYS)
     Route: 048
     Dates: start: 20200610
  2. IBRANCE [Suspect]
     Active Substance: PALBOCICLIB
     Dosage: 75 MG, 2X/DAY [75 MG, 1 TAB PO (ORAL) DAILY 2/DAY EVERY 28 DAYS]
     Route: 048
     Dates: start: 20200610
  3. IBRANCE [Suspect]
     Active Substance: PALBOCICLIB
     Dosage: 75 MG, DAILY
  4. IBRANCE [Suspect]
     Active Substance: PALBOCICLIB
     Dosage: IBRANCE 75 MG P.D 21 DAYS ON, 7 DAYS OFF
  5. LETROZOLE [Concomitant]
     Active Substance: LETROZOLE
  6. GOSELIN [Concomitant]

REACTIONS (5)
  - Death [Fatal]
  - Off label use [Unknown]
  - Product use issue [Unknown]
  - Off label use [Unknown]
  - Blood test abnormal [Unknown]

NARRATIVE: CASE EVENT DATE: 20200610
